FAERS Safety Report 7628621-3 (Version None)
Quarter: 2011Q3

REPORT INFORMATION
  Report Type: 
  Country: None (occurrence: None)
  Receive Date: 20110722
  Receipt Date: 20110719
  Transmission Date: 20111222
  Serious: Yes (Other)
  Sender: FDA-Public Use
  Company Number: US-AMGEN-USASP2011036875

PATIENT
  Age: 2 Year
  Sex: Male

DRUGS (4)
  1. RITUXAN [Concomitant]
     Dosage: UNK
     Dates: start: 20110420
  2. DEXAMETHASONE [Concomitant]
     Dosage: UNK
     Dates: start: 20110420
  3. PREDNISONE [Concomitant]
     Route: 048
  4. NPLATE [Suspect]
     Indication: IDIOPATHIC THROMBOCYTOPENIC PURPURA
     Dates: start: 20101213

REACTIONS (1)
  - BIOPSY BONE MARROW ABNORMAL [None]
